FAERS Safety Report 20144734 (Version 1)
Quarter: 2021Q4

REPORT INFORMATION
  Report Type: Spontaneous
  Country: US (occurrence: None)
  Receive Date: 20211202
  Receipt Date: 20211202
  Transmission Date: 20220303
  Serious: No
  Sender: FDA-Public Use
  Company Number: None

PATIENT
  Age: 58 Year
  Sex: Male

DRUGS (1)
  1. CEPHALEXIN [Suspect]
     Active Substance: CEPHALEXIN
     Indication: Cellulitis
     Dosage: FREQUENCY : DAILY;?
     Route: 048
     Dates: start: 20200210, end: 20200214

REACTIONS (4)
  - Rash [None]
  - Erythema multiforme [None]
  - Pruritus [None]
  - Urticaria [None]

NARRATIVE: CASE EVENT DATE: 20200214
